FAERS Safety Report 20287537 (Version 1)
Quarter: 2022Q1

REPORT INFORMATION
  Report Type: Spontaneous
  Country: SA (occurrence: SA)
  Receive Date: 20220103
  Receipt Date: 20220103
  Transmission Date: 20220423
  Serious: Yes (Death, Life-Threatening, Hospitalization, Other)
  Sender: FDA-Public Use
  Company Number: SA-AMGEN-SAUSP2021208286

PATIENT

DRUGS (9)
  1. FILGRASTIM [Suspect]
     Active Substance: FILGRASTIM
     Indication: Product used for unknown indication
     Route: 065
  2. CARMUSTINE [Concomitant]
     Active Substance: CARMUSTINE
     Indication: Lymphoma
     Dosage: 300 MICROGRAM/SQ. METER (ON DAY -6)
     Route: 042
  3. BENDAMUSTINE [Concomitant]
     Active Substance: BENDAMUSTINE
     Indication: Lymphoma
     Dosage: 160 MICROGRAM/SQ. METER (ON DAYS-7 AND -6)
  4. CYTARABINE [Concomitant]
     Active Substance: CYTARABINE
     Dosage: 200 MILLIGRAM/SQ. METER, BID  DAY -5 UNTIL DAY -2 (8 DOSES)
     Route: 042
  5. ETOPOSIDE [Concomitant]
     Active Substance: ETOPOSIDE
     Dosage: 200 MILLIGRAM/SQ. METER FROM  DAY-5 TO DAY-2
     Route: 042
  6. MELPHALAN [Concomitant]
     Active Substance: MELPHALAN
     Dosage: 140 MILLIGRAM/SQ. METER, ON DAY -1 BEFORE THE TRANSPLANT
     Route: 042
  7. ACYCLOVIR [Concomitant]
     Active Substance: ACYCLOVIR
     Indication: Prophylaxis
  8. FLUCONAZOLE [Concomitant]
     Active Substance: FLUCONAZOLE
     Indication: Prophylaxis
  9. LEVOFLOXACIN [Concomitant]
     Active Substance: LEVOFLOXACIN
     Indication: Prophylaxis

REACTIONS (13)
  - Death [Fatal]
  - Pulmonary toxicity [Unknown]
  - Colitis [Recovered/Resolved]
  - Hospitalisation [Unknown]
  - Hepatic enzyme increased [Unknown]
  - Nephropathy toxic [Unknown]
  - Cardiotoxicity [Unknown]
  - Bacteraemia [Unknown]
  - Lymphoma [Unknown]
  - Mucosal inflammation [Unknown]
  - Diarrhoea [Unknown]
  - Nausea [Unknown]
  - Vomiting [Unknown]
